FAERS Safety Report 5728766-9 (Version None)
Quarter: 2008Q2

REPORT INFORMATION
  Report Type: 
  Country: None (occurrence: None)
  Receive Date: 20080506
  Receipt Date: 20080429
  Transmission Date: 20081010
  Serious: Yes (Death)
  Sender: FDA-Public Use
  Company Number: B0518767A

PATIENT
  Age: 71 Year
  Sex: Female

DRUGS (5)
  1. ULTIVA [Suspect]
     Indication: DRUG USE FOR UNKNOWN INDICATION
     Route: 065
     Dates: start: 20071226, end: 20071226
  2. ACETAMINOPHEN [Suspect]
     Indication: DRUG USE FOR UNKNOWN INDICATION
     Dosage: 1G FOUR TIMES PER DAY
     Route: 042
     Dates: end: 20071227
  3. MORPHINE [Suspect]
     Indication: DRUG USE FOR UNKNOWN INDICATION
     Route: 042
  4. DIPRIVAN [Suspect]
     Indication: DRUG USE FOR UNKNOWN INDICATION
     Route: 065
     Dates: start: 20071226, end: 20071226
  5. DROLEPTAN [Suspect]
     Indication: DRUG USE FOR UNKNOWN INDICATION
     Route: 065
     Dates: start: 20071226, end: 20071226

REACTIONS (7)
  - BONE MARROW FAILURE [None]
  - HYPERTHERMIA [None]
  - HYPOTENSION [None]
  - LACTIC ACIDOSIS [None]
  - LUNG DISORDER [None]
  - RESPIRATORY DISORDER [None]
  - SEPTIC SHOCK [None]
